FAERS Safety Report 13572412 (Version 2)
Quarter: 2019Q3

REPORT INFORMATION
  Report Type: Spontaneous
  Country: US (occurrence: US)
  Receive Date: 20170523
  Receipt Date: 20190913
  Transmission Date: 20191004
  Serious: No
  Sender: FDA-Public Use
  Company Number: US-JNJFOC-20141220726

PATIENT
  Age: 58 Year
  Sex: Male

DRUGS (8)
  1. CALCIUM + D3 [Concomitant]
     Active Substance: CALCIUM\CHOLECALCIFEROL
  2. ASCORBIC ACID. [Concomitant]
     Active Substance: ASCORBIC ACID
  3. LACTOBACILLUS [Concomitant]
     Active Substance: LACTOBACILLUS ACIDOPHILUS
  4. LEVETIRACETAM. [Concomitant]
     Active Substance: LEVETIRACETAM
  5. IMBRUVICA [Suspect]
     Active Substance: IBRUTINIB
     Indication: WALDENSTROM^S MACROGLOBULINAEMIA
     Route: 048
     Dates: start: 20140916, end: 201805
  6. IMBRUVICA [Suspect]
     Active Substance: IBRUTINIB
     Route: 048
  7. VITAMIN D [Concomitant]
     Active Substance: VITAMIN D NOS
  8. FISH OIL [Concomitant]
     Active Substance: FISH OIL

REACTIONS (5)
  - Off label use [Unknown]
  - Fatigue [Not Recovered/Not Resolved]
  - Tremor [Not Recovered/Not Resolved]
  - Incorrect dose administered [Unknown]
  - Neuropathy peripheral [Not Recovered/Not Resolved]

NARRATIVE: CASE EVENT DATE: 20140916
